FAERS Safety Report 19955662 (Version 1)
Quarter: 2021Q4

REPORT INFORMATION
  Report Type: Spontaneous
  Country: US (occurrence: US)
  Receive Date: 20211013
  Receipt Date: 20211013
  Transmission Date: 20220303
  Serious: Yes (Other)
  Sender: FDA-Public Use
  Company Number: US-BIOVITRUM-2021US8889

PATIENT
  Age: 39 Year
  Sex: Female

DRUGS (1)
  1. KINERET [Suspect]
     Active Substance: ANAKINRA
     Indication: Behcet^s syndrome
     Route: 058
     Dates: start: 20210601

REACTIONS (10)
  - Behcet^s syndrome [Unknown]
  - Condition aggravated [Unknown]
  - Blister [Unknown]
  - Tremor [Unknown]
  - Arthritis [Unknown]
  - Blood iron decreased [Unknown]
  - Vitamin B complex deficiency [Unknown]
  - Rash [Unknown]
  - Headache [Unknown]
  - Off label use [Unknown]

NARRATIVE: CASE EVENT DATE: 20210601
